FAERS Safety Report 5507201-X (Version None)
Quarter: 2007Q4

REPORT INFORMATION
  Report Type: 
  Country: None (occurrence: None)
  Receive Date: 20071102
  Receipt Date: 20071018
  Transmission Date: 20080405
  Serious: Yes (Hospitalization)
  Sender: FDA-Public Use
  Company Number: GXKR2007US08986

PATIENT
  Age: 59 Year
  Sex: Female

DRUGS (5)
  1. CEFTRIAXONE [Suspect]
     Indication: OSTEOMYELITIS
     Dosage: 2 G DAILY, INTRAVENOUS
     Route: 042
  2. VANCOMYCIN                                       (NGX) [Suspect]
     Indication: OSTEOMYELITIS
     Dosage: 1G, Q12H, INTRAVENOUS
     Route: 042
  3. GLYBURIDE [Concomitant]
  4. PIOGLITAZONE HCL [Concomitant]
  5. ISOPHANE INSULIN                   (ISOPHANE INSULIN) [Concomitant]

REACTIONS (6)
  - DRUG LEVEL ABOVE THERAPEUTIC [None]
  - EOSINOPHILIA [None]
  - NEPHRITIS INTERSTITIAL [None]
  - PYREXIA [None]
  - RENAL FAILURE ACUTE [None]
  - URINARY SEDIMENT PRESENT [None]
